FAERS Safety Report 9350070 (Version 1)
Quarter: 2013Q2

REPORT INFORMATION
  Report Type: Spontaneous
  Country: BR (occurrence: BR)
  Receive Date: 20130615
  Receipt Date: 20130615
  Transmission Date: 20140414
  Serious: Yes (Hospitalization, Other)
  Sender: FDA-Public Use
  Company Number: BR-009507513-1306BRA004214

PATIENT
  Age: 79 Year
  Sex: Male
  Weight: 50 kg

DRUGS (4)
  1. SIMVASTATIN [Suspect]
     Indication: BLOOD CHOLESTEROL INCREASED
     Dosage: UNK
     Route: 048
     Dates: end: 201209
  2. VYTORIN [Suspect]
     Indication: BLOOD CHOLESTEROL INCREASED
     Dosage: UNK, QD
     Route: 048
     Dates: start: 201209
  3. VITAMIN B COMPLEX [Concomitant]
     Dosage: UNK, QAM
     Dates: start: 201211
  4. LEXAPRO [Concomitant]
     Indication: PROPHYLAXIS
     Dosage: UNK, QD
     Dates: start: 2010

REACTIONS (9)
  - Cardiac disorder [Unknown]
  - Aortic stent insertion [Unknown]
  - Cardiac pacemaker insertion [Unknown]
  - Haematoma [Not Recovered/Not Resolved]
  - Arrhythmia [Not Recovered/Not Resolved]
  - Varicose vein [Not Recovered/Not Resolved]
  - Confusional state [Not Recovered/Not Resolved]
  - Hypothyroidism [Unknown]
  - Drug ineffective [Unknown]
